FAERS Safety Report 18434185 (Version 2)
Quarter: 2022Q2

REPORT INFORMATION
  Report Type: Spontaneous
  Country: CA (occurrence: CA)
  Receive Date: 20201027
  Receipt Date: 20220527
  Transmission Date: 20220721
  Serious: Yes (Hospitalization)
  Sender: FDA-Public Use
  Company Number: CA-MUNDIPHARMA RESEARCH LIMITED-CAN-2020-0011796

PATIENT
  Age: 83 Year
  Sex: Female

DRUGS (37)
  1. OXYCONTIN [Suspect]
     Active Substance: OXYCODONE HYDROCHLORIDE
     Indication: Product used for unknown indication
     Dosage: UNK
     Route: 048
  2. ACTEMRA [Suspect]
     Active Substance: TOCILIZUMAB
     Indication: Rheumatoid arthritis
     Dosage: 488 MG, MONTHLY
     Route: 042
  3. CELECOXIB [Suspect]
     Active Substance: CELECOXIB
     Indication: Product used for unknown indication
     Dosage: UNK
     Route: 048
  4. CELECOXIB [Suspect]
     Active Substance: CELECOXIB
     Dosage: UNK
     Route: 048
  5. ENBREL [Suspect]
     Active Substance: ETANERCEPT
     Indication: Rheumatoid arthritis
     Dosage: 50 MG, 1/WEEK
     Route: 065
  6. FENTANYL [Suspect]
     Active Substance: FENTANYL
     Indication: Product used for unknown indication
     Dosage: UNK
     Route: 065
  7. GABAPENTIN [Suspect]
     Active Substance: GABAPENTIN
     Indication: Product used for unknown indication
     Dosage: 100 MG, BID
     Route: 048
  8. HYDROXYCHLOROQUINE [Suspect]
     Active Substance: HYDROXYCHLOROQUINE
     Indication: Rheumatoid arthritis
     Dosage: 400 MG, DAILY
     Route: 065
  9. METHOTREXATE [Suspect]
     Active Substance: METHOTREXATE
     Indication: Product used for unknown indication
     Dosage: UNK UNK, 1/WEEK
     Route: 058
  10. MYOCHRYSINE [Suspect]
     Active Substance: GOLD SODIUM THIOMALATE
     Indication: Rheumatoid arthritis
     Dosage: UNK
     Route: 030
  11. ORENCIA [Suspect]
     Active Substance: ABATACEPT
     Indication: Rheumatoid arthritis
     Dosage: 750 MG, MONTHLY
     Route: 042
  12. SULFASALAZINE [Suspect]
     Active Substance: SULFASALAZINE
     Indication: Product used for unknown indication
     Dosage: 2.5 MG, DAILY
     Route: 048
  13. ACETAMINOPHEN\OXYCODONE HYDROCHLORIDE [Concomitant]
     Active Substance: ACETAMINOPHEN\OXYCODONE HYDROCHLORIDE
     Indication: Pain
     Dosage: UNK
     Route: 065
  14. ACLASTA [Concomitant]
     Active Substance: ZOLEDRONIC ACID
     Indication: Product used for unknown indication
     Dosage: 750 MG, MONTHLY
     Route: 042
  15. ACTONEL [Concomitant]
     Active Substance: RISEDRONATE SODIUM
     Indication: Product used for unknown indication
     Dosage: 36 MG, 1/WEEK
     Route: 065
  16. ACTONEL [Concomitant]
     Active Substance: RISEDRONATE SODIUM
     Dosage: 36 MG, 1/WEEK
  17. DIPHENOXYLATE HYDROCHLORIDE [Concomitant]
     Active Substance: DIPHENOXYLATE HYDROCHLORIDE
     Indication: Product used for unknown indication
     Dosage: 2.5 MG, DAILY
     Route: 065
  18. DIPHENOXYLATE HYDROCHLORIDE [Concomitant]
     Active Substance: DIPHENOXYLATE HYDROCHLORIDE
     Dosage: 2.5 MG, DAILY
     Route: 065
  19. ERGOCALCIFEROL [Concomitant]
     Active Substance: ERGOCALCIFEROL
     Indication: Product used for unknown indication
     Dosage: 400 IU, DAILY
     Route: 065
  20. ERGOCALCIFEROL [Concomitant]
     Active Substance: ERGOCALCIFEROL
     Dosage: 400 IU, DAILY
     Route: 065
  21. ESOMEPRAZOLE [Concomitant]
     Active Substance: ESOMEPRAZOLE
     Indication: Product used for unknown indication
     Dosage: 40 MG, BID
     Route: 065
  22. ESOMEPRAZOLE [Concomitant]
     Active Substance: ESOMEPRAZOLE
     Dosage: 40 MG, BID
     Route: 065
  23. FERROUS GLUCONATE [Concomitant]
     Active Substance: FERROUS GLUCONATE
     Indication: Product used for unknown indication
     Dosage: 300 MG, DAILY
     Route: 065
  24. FERROUS GLUCONATE [Concomitant]
     Active Substance: FERROUS GLUCONATE
     Dosage: 300 MG, DAILY
     Route: 065
  25. LOPERAMIDE HYDROCHLORIDE [Concomitant]
     Active Substance: LOPERAMIDE HYDROCHLORIDE
     Indication: Product used for unknown indication
     Dosage: 2.5 MG, UNK
     Route: 065
  26. LOPERAMIDE HYDROCHLORIDE [Concomitant]
     Active Substance: LOPERAMIDE HYDROCHLORIDE
     Dosage: 2.5 MG, UNK
     Route: 065
  27. NASONEX [Concomitant]
     Active Substance: MOMETASONE FUROATE
     Indication: Product used for unknown indication
     Dosage: 2 UNK, BID
     Route: 065
  28. NASONEX [Concomitant]
     Active Substance: MOMETASONE FUROATE
     Dosage: 2 UNK, BID
     Route: 065
  29. PANTOPRAZOLE MAGNESIUM [Concomitant]
     Active Substance: PANTOPRAZOLE MAGNESIUM
     Indication: Product used for unknown indication
     Dosage: 40 MG, DAILY
     Route: 065
  30. PANTOPRAZOLE MAGNESIUM [Concomitant]
     Active Substance: PANTOPRAZOLE MAGNESIUM
     Dosage: 40 MG, DAILY
     Route: 065
  31. PREDNISONE [Concomitant]
     Active Substance: PREDNISONE
     Indication: Product used for unknown indication
     Dosage: 50 MG, DAILY
     Route: 065
  32. PREDNISONE [Concomitant]
     Active Substance: PREDNISONE
     Dosage: 50 MG, DAILY
     Route: 065
  33. TRAZODONE HYDROCHLORIDE [Concomitant]
     Active Substance: TRAZODONE HYDROCHLORIDE
     Indication: Product used for unknown indication
     Dosage: 50 MG, DAILY
     Route: 048
  34. TRAZODONE HYDROCHLORIDE [Concomitant]
     Active Substance: TRAZODONE HYDROCHLORIDE
     Dosage: 50 MG, DAILY
     Route: 048
  35. TYLENOL                            /00020001/ [Concomitant]
     Indication: Product used for unknown indication
     Dosage: 1000 MG, DAILY
     Route: 048
  36. TYLENOL                            /00020001/ [Concomitant]
     Dosage: 1000 MG, DAILY
     Route: 048
  37. ACETAMINOPHEN\OXYCODONE HYDROCHLORIDE [Concomitant]
     Active Substance: ACETAMINOPHEN\OXYCODONE HYDROCHLORIDE
     Indication: Pain
     Dosage: UNK
     Route: 065

REACTIONS (20)
  - Drug intolerance [Unknown]
  - Blood creatinine increased [Unknown]
  - Cyst [Unknown]
  - Deafness neurosensory [Unknown]
  - Diarrhoea [Unknown]
  - Drug ineffective [Unknown]
  - Dry eye [Unknown]
  - Epigastric discomfort [Unknown]
  - Fatigue [Unknown]
  - Gastrointestinal disorder [Unknown]
  - Infection [Unknown]
  - Nausea [Unknown]
  - Osteoarthritis [Unknown]
  - Osteopenia [Unknown]
  - Pleural fibrosis [Unknown]
  - Presbyacusis [Unknown]
  - Renal impairment [Unknown]
  - Skin lesion [Unknown]
  - Sleep disorder [Unknown]
  - Treatment failure [Unknown]
